FAERS Safety Report 9023946 (Version 1)
Quarter: 2013Q1

REPORT INFORMATION
  Report Type: Spontaneous
  Country: US (occurrence: US)
  Receive Date: 20130121
  Receipt Date: 20130121
  Transmission Date: 20140127
  Serious: No
  Sender: FDA-Public Use
  Company Number: US-PFIZER INC-2013020815

PATIENT
  Age: 63 Year
  Sex: Female

DRUGS (14)
  1. AMLODIPINE BESILATE [Suspect]
     Dosage: UNK
  2. CIPROFLOXACIN [Suspect]
     Dosage: UNK
  3. ERYTHROMYCIN [Suspect]
     Dosage: UNK
  4. TRAMADOL [Suspect]
     Dosage: UNK
  5. REGLAN [Suspect]
     Dosage: UNK
  6. PRILOSEC [Suspect]
     Dosage: UNK
  7. AVANDIA [Suspect]
     Dosage: UNK
  8. BYSTOLIC [Suspect]
     Dosage: UNK
  9. LORTAB [Suspect]
     Dosage: UNK
  10. COREG [Suspect]
     Dosage: UNK
  11. OXYCONTIN [Suspect]
     Dosage: UNK
  12. DARVOCET [Suspect]
     Dosage: UNK
  13. DILAUDID [Suspect]
     Dosage: UNK
  14. TETANUS TOXOID [Suspect]
     Dosage: UNK

REACTIONS (1)
  - Drug hypersensitivity [Unknown]
